FAERS Safety Report 19429237 (Version 3)
Quarter: 2021Q3

REPORT INFORMATION
  Report Type: Report from Study
  Country: CO (occurrence: CO)
  Receive Date: 20210617
  Receipt Date: 20210702
  Transmission Date: 20211014
  Serious: Yes (Death, Hospitalization, Other)
  Sender: FDA-Public Use
  Company Number: CO-TAKEDA-2020TUS053544

PATIENT
  Age: 53 Year
  Sex: Female
  Weight: 54.88 kg

DRUGS (2)
  1. HUMAN IMMUNOGLOBULIN; HYALURONIDASE [Suspect]
     Active Substance: HUMAN IMMUNOGLOBULIN G\HYALURONIDASE RECOMBINANT HUMAN
     Indication: PRIMARY IMMUNODEFICIENCY SYNDROME
     Dosage: 10 GRAM,VIAL 2.5G/5G AND 10G FOR TREATMENT, ADMINISTRATION MONTHLY FACILITATED WITH HYALURONIDASE
     Route: 058
     Dates: start: 20200318
  2. HUMAN IMMUNOGLOBULIN; HYALURONIDASE [Suspect]
     Active Substance: HUMAN IMMUNOGLOBULIN G\HYALURONIDASE RECOMBINANT HUMAN
     Dosage: 30 GRAM, MONTHLY
     Route: 058
     Dates: start: 20200318

REACTIONS (4)
  - Multiple organ dysfunction syndrome [Fatal]
  - COVID-19 pneumonia [Not Recovered/Not Resolved]
  - Shock [Fatal]
  - Incorrect dosage administered [Unknown]

NARRATIVE: CASE EVENT DATE: 20201123
